FAERS Safety Report 19759677 (Version 1)
Quarter: 2021Q3

REPORT INFORMATION
  Report Type: Spontaneous
  Country: CA (occurrence: CA)
  Receive Date: 20210830
  Receipt Date: 20210830
  Transmission Date: 20211014
  Serious: Yes (Hospitalization, Other)
  Sender: FDA-Public Use
  Company Number: CA-AUROBINDO-AUR-APL-2021-035912

PATIENT
  Age: 30 Year
  Sex: Male

DRUGS (14)
  1. PRAVASTATIN TABLET [Suspect]
     Active Substance: PRAVASTATIN
     Indication: LOW DENSITY LIPOPROTEIN ABNORMAL
  2. LOMITAPIDE MESILATE [Suspect]
     Active Substance: LOMITAPIDE MESYLATE
     Indication: LOW DENSITY LIPOPROTEIN ABNORMAL
     Dosage: UNK
     Route: 065
  3. PRALUENT [Suspect]
     Active Substance: ALIROCUMAB
     Indication: LOW DENSITY LIPOPROTEIN ABNORMAL
     Dosage: UNK
     Route: 065
  4. SIMVASTATIN TABLET [Suspect]
     Active Substance: SIMVASTATIN
     Indication: LOW DENSITY LIPOPROTEIN ABNORMAL
     Dosage: UNK
     Route: 065
  5. NICOTINIC ACID [Suspect]
     Active Substance: NIACIN
     Indication: LOW DENSITY LIPOPROTEIN ABNORMAL
     Dosage: UNK
     Route: 065
  6. LOVASTATIN. [Suspect]
     Active Substance: LOVASTATIN
     Indication: LOW DENSITY LIPOPROTEIN ABNORMAL
     Dosage: UNK
     Route: 065
  7. EZETIMIBE TABLETS [Suspect]
     Active Substance: EZETIMIBE
     Indication: LOW DENSITY LIPOPROTEIN ABNORMAL
     Dosage: UNK
     Route: 065
  8. LODALIS [Suspect]
     Active Substance: COLESEVELAM HYDROCHLORIDE
     Indication: LOW DENSITY LIPOPROTEIN ABNORMAL
  9. ATORVASTATIN [Suspect]
     Active Substance: ATORVASTATIN
     Indication: LOW DENSITY LIPOPROTEIN ABNORMAL
     Dosage: UNK
     Route: 065
  10. EICOSAPENTAENOIC ACID ETHYL ESTER [Suspect]
     Active Substance: ICOSAPENT ETHYL
     Indication: LOW DENSITY LIPOPROTEIN ABNORMAL
     Dosage: UNK
     Route: 065
  11. REPATHA [Suspect]
     Active Substance: EVOLOCUMAB
     Indication: LOW DENSITY LIPOPROTEIN ABNORMAL
     Dosage: UNK
     Route: 065
  12. ROSUVASTATIN. [Suspect]
     Active Substance: ROSUVASTATIN
     Indication: LOW DENSITY LIPOPROTEIN ABNORMAL
     Dosage: UNK
     Route: 065
  13. CHOLESTYRAMINE RESIN [Suspect]
     Active Substance: CHOLESTYRAMINE
     Indication: LOW DENSITY LIPOPROTEIN ABNORMAL
  14. FLUVASTATIN SODIUM. [Suspect]
     Active Substance: FLUVASTATIN SODIUM
     Indication: LOW DENSITY LIPOPROTEIN ABNORMAL
     Route: 065

REACTIONS (3)
  - Myocardial infarction [Unknown]
  - Cerebrovascular accident [Unknown]
  - Drug ineffective [Unknown]
